FAERS Safety Report 14314894 (Version 1)
Quarter: 2017Q4

REPORT INFORMATION
  Report Type: Spontaneous
  Country: DE (occurrence: DE)
  Receive Date: 20171221
  Receipt Date: 20171221
  Transmission Date: 20180321
  Serious: Yes (Other)
  Sender: FDA-Public Use
  Company Number: DE-PFIZER INC-2017464233

PATIENT
  Age: 22 Year
  Sex: Female
  Weight: 56 kg

DRUGS (2)
  1. SAYANA [Suspect]
     Active Substance: MEDROXYPROGESTERONE
     Indication: CONTRACEPTION
     Dosage: 1 DF, EVERY 3 MONTHS
     Route: 030
  2. SAYANA [Suspect]
     Active Substance: MEDROXYPROGESTERONE
     Dosage: 1 DF, EVERY 3 MONTHS
     Route: 058

REACTIONS (3)
  - Injection site inflammation [Not Recovered/Not Resolved]
  - Injection site induration [Not Recovered/Not Resolved]
  - Incorrect route of drug administration [Recovered/Resolved]
